FAERS Safety Report 21406653 (Version 1)
Quarter: 2022Q4

REPORT INFORMATION
  Report Type: Spontaneous
  Country: US (occurrence: US)
  Receive Date: 20221004
  Receipt Date: 20221004
  Transmission Date: 20230112
  Serious: No
  Sender: FDA-Public Use
  Company Number: US-BION-010646

PATIENT
  Age: 88 Year
  Sex: Male

DRUGS (1)
  1. IMODIUM A-D [Suspect]
     Active Substance: LOPERAMIDE HYDROCHLORIDE
     Indication: Diarrhoea
     Dosage: 3 PILLS ON SATURDAY, 3 PILLS ON SUNDAY AND 2 PILLS ON MONDAY
     Dates: start: 20220409

REACTIONS (1)
  - Drug ineffective [Not Recovered/Not Resolved]
